FAERS Safety Report 9292510 (Version 1)
Quarter: 2013Q2

REPORT INFORMATION
  Report Type: Spontaneous
  Country: US (occurrence: US)
  Receive Date: 20130516
  Receipt Date: 20130516
  Transmission Date: 20140414
  Serious: Yes (Other)
  Sender: FDA-Public Use
  Company Number: US-PFIZER INC-2013146772

PATIENT
  Sex: Male

DRUGS (1)
  1. LEVOXYL [Suspect]
     Dosage: UNK
     Dates: start: 2012

REACTIONS (3)
  - Herpes zoster [Unknown]
  - Vitamin B complex deficiency [Unknown]
  - Back disorder [Unknown]
